FAERS Safety Report 6722706-1 (Version None)
Quarter: 2010Q2

REPORT INFORMATION
  Report Type: 
  Country: None (occurrence: None)
  Receive Date: 20100512
  Receipt Date: 20100504
  Transmission Date: 20101027
  Serious: Yes (Death, Hospitalization)
  Sender: FDA-Public Use
  Company Number: US-AMGEN-KDL410284

PATIENT
  Age: 59 Year
  Sex: Female

DRUGS (3)
  1. CINACALCET [Suspect]
     Indication: HYPERPARATHYROIDISM PRIMARY
  2. DEXAMETHASONE [Concomitant]
     Route: 042
  3. VELCADE [Concomitant]

REACTIONS (6)
  - BLOOD PARATHYROID HORMONE ABNORMAL [None]
  - HYPERVISCOSITY SYNDROME [None]
  - HYPOCALCAEMIA [None]
  - MULTIPLE MYELOMA [None]
  - NEUROPATHY PERIPHERAL [None]
  - SEPSIS [None]
